FAERS Safety Report 6592827-5 (Version None)
Quarter: 2010Q1

REPORT INFORMATION
  Report Type: 
  Country: None (occurrence: None)
  Receive Date: 20100212
  Receipt Date: 20100128
  Transmission Date: 20100710
  Serious: Yes (Other)
  Sender: FDA-Public Use
  Company Number: 2010SCPR000306

PATIENT
  Age: 35 Year
  Sex: Female
  Weight: 84.4 kg

DRUGS (3)
  1. PROPRANOLOL HYDROCHLORIDE [Suspect]
     Indication: HYPERTENSION
     Dosage: 80 MG (1 PILL EVERY  80 MG (1 PILL EVERY EVENING), ORAL
     Route: 048
     Dates: start: 20070101
  2. PROPRANOLOL HYDROCHLORIDE [Suspect]
     Indication: MIGRAINE
     Dosage: 80 MG (1 PILL EVERY  80 MG (1 PILL EVERY EVENING), ORAL
     Route: 048
     Dates: start: 20070101
  3. ORTHO-CEPT [Concomitant]

REACTIONS (6)
  - DISORIENTATION [None]
  - FEELING ABNORMAL [None]
  - HYPERHIDROSIS [None]
  - HYPOGLYCAEMIA [None]
  - HYPOTENSION [None]
  - LOSS OF CONSCIOUSNESS [None]
